FAERS Safety Report 17578965 (Version 9)
Quarter: 2021Q3

REPORT INFORMATION
  Report Type: Report from Study
  Country: GB (occurrence: GB)
  Receive Date: 20200324
  Receipt Date: 20210802
  Transmission Date: 20211014
  Serious: Yes (Hospitalization)
  Sender: FDA-Public Use
  Company Number: GB-PFIZER INC-2020121801

PATIENT
  Age: 65 Year
  Sex: Female
  Weight: 80 kg

DRUGS (24)
  1. ATEZOLIZUMAB. [Suspect]
     Active Substance: ATEZOLIZUMAB
     Dosage: 1200 MG, EVERY 3 WEEKS
     Route: 041
     Dates: start: 20200518
  2. CHLORHEXIDINE [Concomitant]
     Active Substance: CHLORHEXIDINE
     Indication: HIATUS HERNIA
     Dosage: UNK
  3. LANSOPRAZOLE. [Concomitant]
     Active Substance: LANSOPRAZOLE
     Dosage: UNK
  4. ATEZOLIZUMAB. [Suspect]
     Active Substance: ATEZOLIZUMAB
     Dosage: 1200 MG, EVERY 3 WEEKS
     Route: 041
     Dates: start: 20200625
  5. ACICLOVIR [Concomitant]
     Active Substance: ACYCLOVIR
     Dosage: UNK, 3X/DAY
     Dates: start: 20200402, end: 20200404
  6. ORAMORPH SR SUSTAINED RELEASE [Concomitant]
     Active Substance: MORPHINE SULFATE
     Indication: PAIN
     Dosage: UNK
  7. ATEZOLIZUMAB. [Suspect]
     Active Substance: ATEZOLIZUMAB
     Indication: TRANSITIONAL CELL CARCINOMA
     Dosage: 1200 MG, EVERY 3 WEEKS
     Route: 041
     Dates: start: 20200210
  8. ATEZOLIZUMAB. [Suspect]
     Active Substance: ATEZOLIZUMAB
     Indication: NON-SMALL CELL LUNG CANCER
     Dosage: 1200 MG, EVERY 3 WEEKS
     Route: 041
     Dates: start: 20200309
  9. DIHYDROCODEINE TARTRATE [Suspect]
     Active Substance: DIHYDROCODEINE BITARTRATE
     Indication: VISUAL IMPAIRMENT
     Dosage: 1 DF, 1X/DAY
     Route: 065
  10. CARBOPLATIN. [Suspect]
     Active Substance: CARBOPLATIN
     Indication: TRANSITIONAL CELL CARCINOMA
     Dosage: 630 MG (INFUSION)
     Route: 042
     Dates: start: 20200210
  11. OXETACAINE [Concomitant]
     Active Substance: OXETHAZAINE
     Indication: MUCOSAL INFLAMMATION
  12. METOCLOPRAMIDE. [Concomitant]
     Active Substance: METOCLOPRAMIDE
     Indication: PAIN
     Dosage: UNK, 3X/DAY
     Dates: start: 20200214, end: 20200222
  13. BUSCOPAN [Concomitant]
     Active Substance: BUTYLSCOPOLAMINE BROMIDE
     Indication: PAIN
     Dosage: UNK, 2X/DAY
     Dates: start: 20200214, end: 20200222
  14. DEXAMETHASONE. [Concomitant]
     Active Substance: DEXAMETHASONE
     Indication: HEADACHE
     Dosage: UNK, 1X/DAY
     Dates: start: 20200625
  15. OXETACAINE [Concomitant]
     Active Substance: OXETHAZAINE
     Indication: MUCOSAL INFLAMMATION
     Dosage: UNK
     Dates: start: 20200221
  16. PACLITAXEL. [Suspect]
     Active Substance: PACLITAXEL
     Indication: TRANSITIONAL CELL CARCINOMA
     Dosage: 378 MG
     Dates: start: 20200427
  17. BEVACIZUMAB. [Suspect]
     Active Substance: BEVACIZUMAB
     Indication: TRANSITIONAL CELL CARCINOMA
     Dosage: 1100 MG
     Route: 042
     Dates: start: 20200210
  18. BEVACIZUMAB. [Suspect]
     Active Substance: BEVACIZUMAB
     Indication: TRANSITIONAL CELL CARCINOMA
  19. ATEZOLIZUMAB. [Suspect]
     Active Substance: ATEZOLIZUMAB
     Dosage: 1200 MG, EVERY 3 WEEKS
     Route: 041
     Dates: start: 20200406
  20. ATEZOLIZUMAB. [Suspect]
     Active Substance: ATEZOLIZUMAB
     Dosage: 1200 MG, EVERY 3 WEEKS
     Route: 041
     Dates: start: 20200608
  21. PARACETAMOL [Concomitant]
     Active Substance: ACETAMINOPHEN
     Indication: PAIN
     Dosage: UNK
  22. NITROFURANTOIN. [Concomitant]
     Active Substance: NITROFURANTOIN
     Indication: HIATUS HERNIA
     Dosage: 1 DF, 1X/DAY
     Dates: start: 20200204
  23. ATEZOLIZUMAB. [Suspect]
     Active Substance: ATEZOLIZUMAB
     Dosage: 1200 MG, EVERY 3 WEEKS
     Route: 041
     Dates: start: 20200427
  24. GELCLAIR [ENOXOLONE;HYALURONATE SODIUM;POVIDONE] [Concomitant]
     Dosage: UNK
     Dates: start: 20200407, end: 20200409

REACTIONS (3)
  - Abdominal pain [Recovered/Resolved]
  - Constipation [Not Recovered/Not Resolved]
  - Abdominal pain [Not Recovered/Not Resolved]

NARRATIVE: CASE EVENT DATE: 20200214
